FAERS Safety Report 19122189 (Version 1)
Quarter: 2021Q2

REPORT INFORMATION
  Report Type: Other
  Country: FR (occurrence: FR)
  Receive Date: 20210412
  Receipt Date: 20210412
  Transmission Date: 20210717
  Serious: Yes (Hospitalization)
  Sender: FDA-Public Use
  Company Number: FR-CADILA HEALTHCARE LIMITED-FR-ZYDUS-064497

PATIENT

DRUGS (6)
  1. CORDARONE [Interacting]
     Active Substance: AMIODARONE HYDROCHLORIDE
     Indication: ATRIAL FIBRILLATION
     Dosage: 600 MILLIGRAM
     Route: 048
     Dates: start: 20210217, end: 20210226
  2. FLUCONAZOLE. [Suspect]
     Active Substance: FLUCONAZOLE
     Indication: OESOPHAGEAL CANDIDIASIS
     Dosage: 200 MILLIGRAM, QD
     Route: 048
     Dates: start: 20210218, end: 20210226
  3. DUOPLAVIN [Concomitant]
     Active Substance: ASPIRIN\CLOPIDOGREL
     Indication: MYOCARDIAL INFARCTION
     Route: 048
     Dates: start: 20210204
  4. BISOPROLOL HEMIFUMARATE [Concomitant]
     Active Substance: BISOPROLOL FUMARATE
     Indication: MYOCARDIAL INFARCTION
     Dates: start: 20210207
  5. ATORVASTATIN [Interacting]
     Active Substance: ATORVASTATIN
     Indication: MYOCARDIAL INFARCTION
     Dosage: 80 MILLIGRAM
     Route: 048
     Dates: start: 20210204, end: 20210226
  6. ORBENINE [Concomitant]
     Active Substance: CLOXACILLIN SODIUM
     Indication: ENDOCARDITIS
     Dosage: UNK
     Route: 042
     Dates: start: 20210217

REACTIONS (1)
  - Rhabdomyolysis [Recovering/Resolving]

NARRATIVE: CASE EVENT DATE: 20210227
